FAERS Safety Report 15662533 (Version 3)
Quarter: 2019Q1

REPORT INFORMATION
  Report Type: Report from Study
  Country: None (occurrence: AU)
  Receive Date: 20181127
  Receipt Date: 20190318
  Transmission Date: 20190417
  Serious: Yes (Hospitalization, Other)
  Sender: FDA-Public Use
  Company Number: AU-ABBVIE-18S-008-2564484-00

PATIENT
  Sex: Male

DRUGS (1)
  1. LUCRIN DEPOT [Suspect]
     Active Substance: LEUPROLIDE ACETATE
     Indication: PROSTATE CANCER
     Route: 030

REACTIONS (9)
  - Post procedural haemorrhage [Not Recovered/Not Resolved]
  - Depression [Unknown]
  - Weight increased [Not Recovered/Not Resolved]
  - Decubitus ulcer [Recovering/Resolving]
  - Cystitis [Recovered/Resolved]
  - Penile haemorrhage [Recovered/Resolved]
  - Urethral stenosis [Unknown]
  - Urinary retention [Unknown]
  - Biopsy kidney abnormal [Unknown]

NARRATIVE: CASE EVENT DATE: 2016
